FAERS Safety Report 25406171 (Version 4)
Quarter: 2025Q4

REPORT INFORMATION
  Report Type: Report from Study
  Country: US (occurrence: US)
  Receive Date: 20250606
  Receipt Date: 20251021
  Transmission Date: 20260117
  Serious: Yes (Other)
  Sender: MALLINCKRODT
  Company Number: US-MALLINCKRODT-MNK202503297

PATIENT
  Age: 35 Year
  Sex: Female

DRUGS (3)
  1. CORTICOTROPIN [Suspect]
     Active Substance: CORTICOTROPIN
     Indication: Rheumatoid arthritis
     Route: 058
     Dates: start: 20181228
  2. CORTICOTROPIN [Suspect]
     Active Substance: CORTICOTROPIN
     Route: 058
  3. BENLYSTA [Concomitant]
     Active Substance: BELIMUMAB
     Dosage: UNKNOWN

REACTIONS (8)
  - Therapeutic procedure [Unknown]
  - COVID-19 [Unknown]
  - Ulcer [Recovering/Resolving]
  - Pruritus [Recovered/Resolved]
  - Discomfort [Recovering/Resolving]
  - Skin infection [Recovered/Resolved]
  - Vomiting [Unknown]
  - Decreased appetite [Recovering/Resolving]

NARRATIVE: CASE EVENT DATE: 20250528
